FAERS Safety Report 15331387 (Version 1)
Quarter: 2018Q3

REPORT INFORMATION
  Report Type: Spontaneous
  Country: US (occurrence: US)
  Receive Date: 20180829
  Receipt Date: 20180829
  Transmission Date: 20181010
  Serious: Yes (Hospitalization)
  Sender: FDA-Public Use
  Company Number: US-DSJP-DSU-2017-138469

PATIENT

DRUGS (3)
  1. AZOR [Suspect]
     Active Substance: AMLODIPINE BESYLATE\OLMESARTAN MEDOXOMIL
     Indication: HYPERTENSION
     Dosage: 5?40 MG, QD
     Route: 048
     Dates: start: 20111104, end: 20140627
  2. AZOR [Suspect]
     Active Substance: AMLODIPINE BESYLATE\OLMESARTAN MEDOXOMIL
     Dosage: 5?40 MG, QD
     Route: 048
  3. AZOR [Suspect]
     Active Substance: AMLODIPINE BESYLATE\OLMESARTAN MEDOXOMIL
     Dosage: 5?40 MG, QD
     Route: 048
     Dates: start: 20140806, end: 2014

REACTIONS (11)
  - Hypotension [Recovering/Resolving]
  - Coeliac disease [Recovered/Resolved]
  - Helicobacter gastritis [Unknown]
  - Transaminases increased [Unknown]
  - Sprue-like enteropathy [Recovered/Resolved]
  - Acute kidney injury [Recovered/Resolved]
  - Haemorrhoids [Unknown]
  - Cholelithiasis [Unknown]
  - Gastrooesophageal reflux disease [Recovered/Resolved]
  - Diverticulum intestinal [Unknown]
  - Barrett^s oesophagus [Unknown]

NARRATIVE: CASE EVENT DATE: 20120312
